FAERS Safety Report 10881800 (Version 2)
Quarter: 2015Q4

REPORT INFORMATION
  Report Type: Spontaneous
  Country: BR (occurrence: BR)
  Receive Date: 20150303
  Receipt Date: 20151027
  Transmission Date: 20160304
  Serious: Yes (Other)
  Sender: FDA-Public Use
  Company Number: BR-CIPLA LTD.-2015BR01594

PATIENT

DRUGS (5)
  1. RISPERIDONE. [Interacting]
     Active Substance: RISPERIDONE
     Indication: PERSECUTORY DELUSION
     Dosage: 1 MG, QD, FOR 4 WEEKS
     Route: 065
  2. HYDROCHLOROTHIAZIDE. [Interacting]
     Active Substance: HYDROCHLOROTHIAZIDE
     Indication: HYPERTENSION
     Dosage: 50 MG, QD
     Route: 065
  3. RISPERIDONE. [Interacting]
     Active Substance: RISPERIDONE
     Dosage: 2 MG, QD, FOR 4 WEEKS
     Route: 065
  4. RISPERIDONE. [Interacting]
     Active Substance: RISPERIDONE
     Dosage: 3 MG, QD
     Route: 065
  5. PAROXETINE [Suspect]
     Active Substance: PAROXETINE\PAROXETINE HYDROCHLORIDE
     Indication: PERSECUTORY DELUSION
     Dosage: 20 MG, QD
     Route: 065

REACTIONS (7)
  - Drug interaction [Unknown]
  - Malaise [None]
  - Palpitations [None]
  - Drug ineffective [Unknown]
  - Electrocardiogram QT prolonged [None]
  - Dizziness [None]
  - Hypokalaemia [None]
